FAERS Safety Report 16851913 (Version 1)
Quarter: 2019Q3

REPORT INFORMATION
  Report Type: Spontaneous
  Country: US (occurrence: US)
  Receive Date: 20190925
  Receipt Date: 20190925
  Transmission Date: 20191005
  Serious: No
  Sender: FDA-Public Use
  Company Number: US-SCILEX PHARMACEUTICALS INC.-2019SCX00054

PATIENT
  Sex: Male

DRUGS (2)
  1. LIDOCAINE SWISH AND SWALLOW [Suspect]
     Active Substance: LIDOCAINE HYDROCHLORIDE
     Route: 048
  2. ZTLIDO [Suspect]
     Active Substance: LIDOCAINE

REACTIONS (2)
  - Dyspnoea [Unknown]
  - Unevaluable event [Unknown]
